FAERS Safety Report 4977447-8 (Version None)
Quarter: 2006Q2

REPORT INFORMATION
  Report Type: 
  Country: None (occurrence: None)
  Receive Date: 20060413
  Receipt Date: 20060330
  Transmission Date: 20061013
  Serious: Yes (Death, Life-Threatening, Hospitalization)
  Sender: FDA-Public Use
  Company Number: CLOF-10107

PATIENT
  Age: 70 Year
  Sex: Male

DRUGS (6)
  1. CLOFARABINE [Suspect]
     Indication: ACUTE MYELOID LEUKAEMIA
     Dosage: 37 MG/M2 QD X 5 IV
     Route: 042
     Dates: start: 20050606, end: 20050905
  2. CO-TRIMOXAZOLE [Concomitant]
  3. SLOW-K [Concomitant]
  4. CHLORHEXADINE MOUTHWASH [Concomitant]
  5. NYSTATIN [Concomitant]
  6. ITRACONAZOLE [Concomitant]

REACTIONS (8)
  - BACTERIA STOOL IDENTIFIED [None]
  - BLOOD PRESSURE FLUCTUATION [None]
  - CELLULITIS [None]
  - CEREBRAL INFARCTION [None]
  - CEREBROVASCULAR ACCIDENT [None]
  - ENCEPHALITIS HERPES [None]
  - GRAND MAL CONVULSION [None]
  - NEUTROPENIC SEPSIS [None]
